FAERS Safety Report 15186930 (Version 1)
Quarter: 2018Q3

REPORT INFORMATION
  Report Type: Report from Study
  Country: US (occurrence: US)
  Receive Date: 20180723
  Receipt Date: 20180723
  Transmission Date: 20181010
  Serious: No
  Sender: FDA-Public Use
  Company Number: US-EXELIXIS-CABO-18011980

PATIENT
  Sex: Male

DRUGS (21)
  1. VOLTAREN [Concomitant]
     Active Substance: DICLOFENAC SODIUM
  2. NEXIUM [Concomitant]
     Active Substance: ESOMEPRAZOLE MAGNESIUM
  3. CYCLOBENZAPRINE. [Concomitant]
     Active Substance: CYCLOBENZAPRINE
  4. TEMAZEPAM. [Concomitant]
     Active Substance: TEMAZEPAM
  5. LEVOTHYROXINE. [Concomitant]
     Active Substance: LEVOTHYROXINE
  6. CABOMETYX [Suspect]
     Active Substance: CABOZANTINIB S-MALATE
     Dosage: 40 MG, QD
     Route: 048
     Dates: start: 20171028
  7. LIDOCAINE. [Concomitant]
     Active Substance: LIDOCAINE
  8. LORAZEPAM. [Concomitant]
     Active Substance: LORAZEPAM
  9. MEGESTROL [Concomitant]
     Active Substance: MEGESTROL
  10. PERCOCET [Concomitant]
     Active Substance: ACETAMINOPHEN\OXYCODONE HYDROCHLORIDE
  11. ELIQUIS [Concomitant]
     Active Substance: APIXABAN
  12. ISOSORBIDE. [Concomitant]
     Active Substance: ISOSORBIDE
  13. ESCITALOPRAM [Concomitant]
     Active Substance: ESCITALOPRAM OXALATE
  14. SOTALOL. [Concomitant]
     Active Substance: SOTALOL
  15. CABOMETYX [Suspect]
     Active Substance: CABOZANTINIB S-MALATE
     Indication: RENAL CANCER
     Dosage: 60 MG, QD
     Route: 048
     Dates: start: 20170617
  16. ALPRAZOLAM. [Concomitant]
     Active Substance: ALPRAZOLAM
  17. ARIPIPRAZOLE. [Concomitant]
     Active Substance: ARIPIPRAZOLE
  18. ROSUVASTATIN. [Concomitant]
     Active Substance: ROSUVASTATIN
  19. DILTIAZEM. [Concomitant]
     Active Substance: DILTIAZEM
  20. DULOXETINE. [Concomitant]
     Active Substance: DULOXETINE
  21. ASPIRIN. [Concomitant]
     Active Substance: ASPIRIN

REACTIONS (1)
  - Malignant neoplasm progression [Unknown]
